FAERS Safety Report 9289164 (Version 1)
Quarter: 2013Q2

REPORT INFORMATION
  Report Type: Report from Study
  Country: US (occurrence: US)
  Receive Date: 20130514
  Receipt Date: 20130514
  Transmission Date: 20140414
  Serious: Yes (Hospitalization)
  Sender: FDA-Public Use
  Company Number: US-ACTELION-A-US2013-82950

PATIENT
  Age: 67 Year
  Sex: Female

DRUGS (9)
  1. TRACLEER [Suspect]
     Indication: PULMONARY ARTERIAL HYPERTENSION
     Dosage: 62.5 MG, BID
     Route: 048
  2. ASPIRIN [Concomitant]
  3. CARVEDILOL [Concomitant]
  4. LANSOPRAZOLE [Concomitant]
  5. LOSARTAN/HYDROCHLOORTHIAZIDE [Concomitant]
  6. NIFEDIPINE ER [Concomitant]
  7. GLUCOPHAGE [Concomitant]
  8. JANUVIA [Concomitant]
  9. CRESTOR [Concomitant]

REACTIONS (6)
  - Small intestinal obstruction [Unknown]
  - Abdominal pain [Unknown]
  - Nausea [Unknown]
  - Chills [Unknown]
  - Diverticulum [Unknown]
  - Electrolyte imbalance [Unknown]
